FAERS Safety Report 10877455 (Version 1)
Quarter: 2015Q1

REPORT INFORMATION
  Report Type: Spontaneous
  Country: GB (occurrence: None)
  Receive Date: 20150224
  Receipt Date: 20150224
  Transmission Date: 20150721
  Serious: Yes (Hospitalization)
  Sender: FDA-Public Use
  Company Number: 2751059

PATIENT
  Age: 68 Year
  Sex: Female

DRUGS (7)
  1. BENDROFLUMETHIAZIDE [Concomitant]
     Active Substance: BENDROFLUMETHIAZIDE
  2. METFORMIN [Concomitant]
     Active Substance: METFORMIN HYDROCHLORIDE
  3. IRBESARTAN. [Concomitant]
     Active Substance: IRBESARTAN
  4. CODEINE PHOSPHATE W/PARACETAMOL [Concomitant]
     Active Substance: ACETAMINOPHEN\CODEINE PHOSPHATE
  5. AMIKACIN [Suspect]
     Active Substance: AMIKACIN
     Indication: URINARY TRACT INFECTION BACTERIAL
     Dosage: NOT OTHERWISE SPECIFIED
     Route: 042
     Dates: start: 20141126, end: 20141127
  6. COLISTIN [Suspect]
     Active Substance: COLISTIN
     Indication: URINARY TRACT INFECTION BACTERIAL
     Dates: start: 20141125, end: 20141126
  7. PANTOPRAZOLE [Concomitant]
     Active Substance: PANTOPRAZOLE SODIUM

REACTIONS (2)
  - Dizziness postural [None]
  - Acute kidney injury [None]

NARRATIVE: CASE EVENT DATE: 20141126
